FAERS Safety Report 25623788 (Version 2)
Quarter: 2025Q3

REPORT INFORMATION
  Report Type: Spontaneous
  Country: IN (occurrence: IN)
  Receive Date: 20250730
  Receipt Date: 20250923
  Transmission Date: 20251020
  Serious: Yes (Other)
  Sender: PFIZER
  Company Number: IN-PFIZER INC-2019073613

PATIENT
  Age: 59 Year
  Sex: Female
  Weight: 61.3 kg

DRUGS (17)
  1. PALBOCICLIB [Suspect]
     Active Substance: PALBOCICLIB
     Indication: Breast cancer metastatic
     Dosage: 125 MG, 1X/DAY
     Route: 048
     Dates: start: 201801
  2. PALBOCICLIB [Suspect]
     Active Substance: PALBOCICLIB
     Dosage: 125 MG, 1X/DAY
     Route: 048
     Dates: start: 20190130
  3. PALBOCICLIB [Suspect]
     Active Substance: PALBOCICLIB
     Route: 048
     Dates: start: 20190131, end: 2019
  4. PALBOCICLIB [Suspect]
     Active Substance: PALBOCICLIB
     Route: 048
     Dates: start: 20190424, end: 2019
  5. PALBOCICLIB [Suspect]
     Active Substance: PALBOCICLIB
     Route: 048
     Dates: start: 20190806
  6. PALBOCICLIB [Suspect]
     Active Substance: PALBOCICLIB
     Dosage: 125 MG, 1X/DAY
     Route: 048
     Dates: start: 20200610
  7. PALBOCICLIB [Suspect]
     Active Substance: PALBOCICLIB
     Dosage: 125 MG, 1X/DAY
     Route: 048
     Dates: start: 20210721, end: 202202
  8. LETROZOLE [Concomitant]
     Active Substance: LETROZOLE
     Dates: start: 201801
  9. FEMARA [Concomitant]
     Active Substance: LETROZOLE
     Dates: start: 201801
  10. CALCIUM CARBONATE\CHOLECALCIFEROL [Concomitant]
     Active Substance: CALCIUM CARBONATE\CHOLECALCIFEROL
     Dates: start: 201801
  11. ZOLEDRONIC ACID [Concomitant]
     Active Substance: ZOLEDRONIC ACID
     Route: 042
     Dates: start: 201801
  12. CALCIUM\CHOLECALCIFEROL [Concomitant]
     Active Substance: CALCIUM\CHOLECALCIFEROL
     Indication: Supplementation therapy
  13. DENOSUMAB [Concomitant]
     Active Substance: DENOSUMAB
     Route: 058
  14. METFORMIN HYDROCHLORIDE [Concomitant]
     Active Substance: METFORMIN HYDROCHLORIDE
     Indication: Diabetes mellitus
     Dosage: 500 MG, 1X/DAY(1-0-0)
  15. LEVOTHYROXINE [Concomitant]
     Active Substance: LEVOTHYROXINE
     Indication: Hyperthyroidism
     Dosage: 50 UG, 1X/DAY(1-0-0)
  16. LIPICURE [Concomitant]
     Indication: Blood cholesterol abnormal
     Dosage: 10 MG, 1X/DAY(0-0-1)
  17. CCM [CALCIUM CARBONATE] [Concomitant]
     Indication: Blood calcium abnormal
     Dosage: UNK, 1X/DAY(0-1-0)

REACTIONS (10)
  - Neutrophil count decreased [Unknown]
  - Arthralgia [Unknown]
  - Bone pain [Unknown]
  - Influenza [Unknown]
  - Musculoskeletal stiffness [Unknown]
  - Haemoglobin decreased [Recovered/Resolved]
  - Glycosylated haemoglobin increased [Unknown]
  - White blood cell count decreased [Unknown]
  - Platelet count decreased [Unknown]
  - Alanine aminotransferase increased [Unknown]

NARRATIVE: CASE EVENT DATE: 20180101
